FAERS Safety Report 12919664 (Version 2)
Quarter: 2016Q4

REPORT INFORMATION
  Report Type: Spontaneous
  Country: US (occurrence: US)
  Receive Date: 20161107
  Receipt Date: 20161110
  Transmission Date: 20170207
  Serious: No
  Sender: FDA-Public Use
  Company Number: US-PFIZER INC-2016516491

PATIENT
  Age: 75 Year
  Sex: Male
  Weight: 54 kg

DRUGS (1)
  1. SUTENT [Suspect]
     Active Substance: SUNITINIB MALATE
     Indication: NEOPLASM MALIGNANT
     Dosage: 1 DF, CYCLIC (TAKE ONE CAPSULE ONCE A DAY BY MOUTH FOR 2 WEEKS ON THEN ONE WEEK BREAK)
     Dates: start: 201610

REACTIONS (1)
  - Malaise [Not Recovered/Not Resolved]

NARRATIVE: CASE EVENT DATE: 20161104
